FAERS Safety Report 6433283-7 (Version None)
Quarter: 2009Q4

REPORT INFORMATION
  Report Type: 
  Country: None (occurrence: None)
  Receive Date: 20091109
  Receipt Date: 20091109
  Transmission Date: 20100525
  Serious: Yes (Other)
  Sender: FDA-Public Use
  Company Number: US-ABBOTT-09P-163-0604021-00

PATIENT
  Age: 39 Year
  Sex: Female

DRUGS (4)
  1. KALETRA [Suspect]
     Indication: HIV INFECTION
     Route: 048
     Dates: start: 20090514, end: 20090930
  2. KALETRA [Suspect]
     Route: 048
     Dates: start: 20091001
  3. COMBIVIR [Suspect]
     Indication: HIV INFECTION
     Route: 048
     Dates: start: 20090514
  4. COCAINE [Concomitant]
     Indication: DRUG USE FOR UNKNOWN INDICATION

REACTIONS (4)
  - ALPHA 1 FOETOPROTEIN ABNORMAL [None]
  - AORTIC DISSECTION [None]
  - PNEUMOTHORAX [None]
  - RESPIRATORY FAILURE [None]
